FAERS Safety Report 11140089 (Version 2)
Quarter: 2015Q3

REPORT INFORMATION
  Report Type: Spontaneous
  Country: US (occurrence: US)
  Receive Date: 20150527
  Receipt Date: 20150803
  Transmission Date: 20151125
  Serious: Yes (Other)
  Sender: FDA-Public Use
  Company Number: US-SHIRE-US201504416

PATIENT
  Sex: Male
  Weight: 87.53 kg

DRUGS (1)
  1. VYVANSE [Suspect]
     Active Substance: LISDEXAMFETAMINE DIMESYLATE
     Indication: ATTENTION DEFICIT/HYPERACTIVITY DISORDER
     Dosage: 30 MG, UNKNOWN
     Route: 048
     Dates: start: 20130627

REACTIONS (5)
  - Antisocial behaviour [Unknown]
  - Physical assault [Unknown]
  - Alcohol use [Unknown]
  - Exposure to unspecified agent [Unknown]
  - Adjustment disorder with mixed anxiety and depressed mood [Unknown]
